FAERS Safety Report 10669593 (Version 1)
Quarter: 2014Q4

REPORT INFORMATION
  Report Type: Spontaneous
  Country: US (occurrence: US)
  Receive Date: 20141222
  Receipt Date: 20141222
  Transmission Date: 20150529
  Serious: Yes (Other)
  Sender: FDA-Public Use
  Company Number: US-SA-2014SA173564

PATIENT
  Age: 61 Year
  Sex: Male

DRUGS (6)
  1. TRILIPIX [Concomitant]
     Active Substance: FENOFIBRIC ACID
     Dosage: 45 MG
     Dates: start: 20110615
  2. DOXAZOSIN [Concomitant]
     Active Substance: DOXAZOSIN\DOXAZOSIN MESYLATE
     Dates: start: 20110808
  3. CETIRIZINE [Concomitant]
     Active Substance: CETIRIZINE HYDROCHLORIDE
     Dosage: 10 MG
  4. AUBAGIO [Suspect]
     Active Substance: TERIFLUNOMIDE
     Indication: MULTIPLE SCLEROSIS
     Route: 065
  5. LEVOTHYROXINE [Concomitant]
     Active Substance: LEVOTHYROXINE
     Dosage: 0.112 MG
     Dates: start: 20141103
  6. TERAZOSIN [Concomitant]
     Active Substance: TERAZOSIN\TERAZOSIN HYDROCHLORIDE
     Dosage: 5 MG
     Dates: start: 20141029

REACTIONS (2)
  - Multiple sclerosis relapse [Not Recovered/Not Resolved]
  - Abdominal pain [Not Recovered/Not Resolved]
